FAERS Safety Report 7665401-7 (Version None)
Quarter: 2011Q3

REPORT INFORMATION
  Report Type: 
  Country: None (occurrence: None)
  Receive Date: 20110806
  Receipt Date: 20110617
  Transmission Date: 20111222
  Serious: No
  Sender: FDA-Public Use
  Company Number: US-ABBOTT-11P-163-0733808-00

PATIENT
  Sex: Female
  Weight: 72.64 kg

DRUGS (19)
  1. NIASPAN [Suspect]
     Indication: BLOOD CHOLESTEROL INCREASED
     Route: 048
     Dates: start: 20110101, end: 20110401
  2. CARVEDILOL [Concomitant]
     Indication: CARDIAC DISORDER
  3. CRESTOR [Concomitant]
     Indication: BLOOD CHOLESTEROL INCREASED
     Dosage: 2.5 MG DAILY
  4. NIASPAN [Suspect]
     Indication: BLOOD TRIGLYCERIDES INCREASED
     Route: 048
     Dates: start: 20110614
  5. LISINOPRIL [Concomitant]
     Indication: HYPERTENSION
  6. SPIRALACTONE [Concomitant]
     Indication: RENAL DISORDER
  7. SOTALOL HCL [Concomitant]
     Indication: CARDIAC DISORDER
  8. NIASPAN [Suspect]
     Indication: BLOOD CHOLESTEROL INCREASED
     Route: 048
     Dates: start: 20110401, end: 20110612
  9. VITAMIN D [Concomitant]
     Indication: VITAMIN SUPPLEMENTATION
  10. ASPIRIN [Concomitant]
     Indication: CARDIAC DISORDER
  11. TYLENOL-500 [Concomitant]
     Indication: ARTHRITIS
  12. FERROUS SULFATE TAB [Concomitant]
     Indication: MINERAL SUPPLEMENTATION
  13. COUMADIN [Concomitant]
     Indication: HEART VALVE REPLACEMENT
  14. DIGOXIN [Concomitant]
     Indication: CARDIAC DISORDER
  15. CALCIUM CARBONATE [Concomitant]
     Indication: MINERAL SUPPLEMENTATION
  16. NIASPAN [Suspect]
     Indication: BLOOD TRIGLYCERIDES INCREASED
  17. PLAVIX [Concomitant]
     Indication: STENT PLACEMENT
  18. NITROFURANDANTIN [Concomitant]
     Indication: PROPHYLAXIS URINARY TRACT INFECTION
  19. OPTIVE [Concomitant]
     Indication: EYE DISORDER
     Route: 047

REACTIONS (5)
  - NAUSEA [None]
  - FLUSHING [None]
  - MYALGIA [None]
  - DIARRHOEA [None]
  - ABDOMINAL PAIN UPPER [None]
